FAERS Safety Report 7462036-6 (Version None)
Quarter: 2011Q2

REPORT INFORMATION
  Report Type: 
  Country: None (occurrence: None)
  Receive Date: 20110506
  Receipt Date: 20110324
  Transmission Date: 20111010
  Serious: Yes (Hospitalization, Other)
  Sender: FDA-Public Use
  Company Number: US-BAYER-2010-008690

PATIENT
  Age: 24 Year
  Sex: Female
  Weight: 68 kg

DRUGS (3)
  1. YAZ [Suspect]
     Indication: ORAL CONTRACEPTION
     Dates: start: 20080801, end: 20090201
  2. ACCUTANE [Concomitant]
     Indication: ACNE
  3. YAZ [Suspect]
     Indication: ACNE

REACTIONS (6)
  - ANXIETY [None]
  - DEEP VEIN THROMBOSIS [None]
  - JOINT SWELLING [None]
  - ARTHRALGIA [None]
  - EMOTIONAL DISTRESS [None]
  - PAIN [None]
